FAERS Safety Report 9472343 (Version 1)
Quarter: 2013Q3

REPORT INFORMATION
  Report Type: Spontaneous
  Country: US (occurrence: US)
  Receive Date: 20130823
  Receipt Date: 20130823
  Transmission Date: 20140515
  Serious: No
  Sender: FDA-Public Use
  Company Number: US-009507513-1308USA009138

PATIENT
  Age: 29 Year
  Sex: Female

DRUGS (2)
  1. AZASITE [Suspect]
     Indication: HORDEOLUM
     Dosage: 1 GTT, BID
     Route: 047
     Dates: start: 20130811, end: 20130813
  2. AZASITE [Suspect]
     Dosage: 1 GTT, QD
     Route: 047
     Dates: start: 20130813, end: 20130818

REACTIONS (1)
  - Oropharyngeal pain [Not Recovered/Not Resolved]
